FAERS Safety Report 7548887-8 (Version None)
Quarter: 2011Q2

REPORT INFORMATION
  Report Type: 
  Country: None (occurrence: None)
  Receive Date: 20110615
  Receipt Date: 20110610
  Transmission Date: 20111010
  Serious: Yes (Death)
  Sender: FDA-Public Use
  Company Number: FR-B.I. PHARMACEUTICALS,INC./RIDGEFIELD-2011-FF-00258FF

PATIENT
  Sex: Male
  Weight: 77 kg

DRUGS (4)
  1. PRADAXA [Suspect]
     Indication: HIP ARTHROPLASTY
     Dosage: 220 MG
     Route: 048
     Dates: start: 20110304, end: 20110308
  2. PRADAXA [Suspect]
     Indication: THROMBOSIS PROPHYLAXIS
  3. TAMSULOSIN HCL [Concomitant]
  4. ACETAMINOPHEN [Concomitant]

REACTIONS (2)
  - PULMONARY EMBOLISM [None]
  - CARDIAC ARREST [None]
